FAERS Safety Report 6883526-0 (Version None)
Quarter: 2010Q3

REPORT INFORMATION
  Report Type: 
  Country: None (occurrence: None)
  Receive Date: 20100729
  Receipt Date: 20100720
  Transmission Date: 20110219
  Serious: Yes (Other)
  Sender: FDA-Public Use
  Company Number: US-JNJCH-200301-0106

PATIENT
  Age: 41 Year
  Sex: Female

DRUGS (2)
  1. BENADRYL [Suspect]
     Indication: PRURITUS
     Dosage: TEXT:5 TABS TOTAL
     Route: 048
     Dates: start: 20021229, end: 20021231
  2. BENADRYL [Suspect]
     Indication: THROAT TIGHTNESS
     Dosage: TEXT:50 MG IV ONCE
     Route: 042
     Dates: start: 20021230, end: 20021230

REACTIONS (4)
  - CONDITION AGGRAVATED [None]
  - RASH [None]
  - THROAT TIGHTNESS [None]
  - URTICARIA [None]
